FAERS Safety Report 6479525-3 (Version None)
Quarter: 2009Q4

REPORT INFORMATION
  Report Type: 
  Country: None (occurrence: None)
  Receive Date: 20091207
  Receipt Date: 20091207
  Transmission Date: 20100525
  Serious: Yes (Other)
  Sender: FDA-Public Use
  Company Number: None

PATIENT
  Age: 74 Year
  Sex: Male
  Weight: 86.1834 kg

DRUGS (1)
  1. ZOLPIDEM TARTRATE [Suspect]
     Indication: INSOMNIA
     Dosage: 10 MG 1 DAY PO
     Route: 048
     Dates: start: 20091005, end: 20091128

REACTIONS (3)
  - CONSTIPATION [None]
  - DYSPEPSIA [None]
  - NAUSEA [None]
